FAERS Safety Report 6969500-4 (Version None)
Quarter: 2010Q3

REPORT INFORMATION
  Report Type: 
  Country: None (occurrence: None)
  Receive Date: 20100907
  Receipt Date: 20100907
  Transmission Date: 20110219
  Serious: Yes (Hospitalization)
  Sender: FDA-Public Use
  Company Number: None

PATIENT
  Age: 53 Year
  Sex: Male
  Weight: 81.2 kg

DRUGS (1)
  1. SULFAMETHOXAZOLE AND TRIMETHOPRIM [Suspect]
     Indication: BURSITIS
     Dosage: 800/160 MG BID PO
     Route: 048
     Dates: start: 20100716, end: 20100720

REACTIONS (3)
  - ERYTHEMA MULTIFORME [None]
  - PAIN [None]
  - SKIN EXFOLIATION [None]
